FAERS Safety Report 15403244 (Version 1)
Quarter: 2018Q3

REPORT INFORMATION
  Report Type: Spontaneous
  Country: US (occurrence: US)
  Receive Date: 20180919
  Receipt Date: 20180919
  Transmission Date: 20181010
  Serious: No
  Sender: FDA-Public Use
  Company Number: None

PATIENT
  Age: 54 Year
  Sex: Male
  Weight: 115.6 kg

DRUGS (1)
  1. RASAGILINE 1MG [Suspect]
     Active Substance: RASAGILINE
     Indication: PARKINSON^S DISEASE
     Route: 048
     Dates: end: 20180907

REACTIONS (4)
  - Exercise tolerance decreased [None]
  - Impaired healing [None]
  - Plantar fasciitis [None]
  - Tendon rupture [None]
